FAERS Safety Report 8257049-0 (Version None)
Quarter: 2012Q2

REPORT INFORMATION
  Report Type: 
  Country: None (occurrence: None)
  Receive Date: 20120403
  Receipt Date: 20120215
  Transmission Date: 20120825
  Serious: Yes (Other)
  Sender: FDA-Public Use
  Company Number: JP-GLAXOSMITHKLINE-B0782777A

PATIENT
  Sex: Male

DRUGS (6)
  1. KOLANTYL [Concomitant]
     Indication: PROPHYLAXIS AGAINST GASTROINTESTINAL ULCER
     Dosage: 3G PER DAY
     Route: 048
     Dates: start: 20090301
  2. URIEF [Concomitant]
     Indication: BENIGN PROSTATIC HYPERPLASIA
     Dosage: 8MG PER DAY
     Route: 048
     Dates: start: 20100120
  3. DIGOXIN [Concomitant]
     Indication: ATRIAL FIBRILLATION
     Dosage: .125MG PER DAY
     Route: 048
     Dates: start: 20040301
  4. DUTASTERIDE [Suspect]
     Indication: BENIGN PROSTATIC HYPERPLASIA
     Dosage: .5MG PER DAY
     Route: 048
     Dates: start: 20100526, end: 20120130
  5. GASTROZEPIN [Concomitant]
     Indication: PROPHYLAXIS AGAINST GASTROINTESTINAL ULCER
     Dosage: 75MG PER DAY
     Route: 048
     Dates: start: 20040301
  6. RANITIDINE [Concomitant]
     Indication: PROPHYLAXIS AGAINST GASTROINTESTINAL ULCER
     Dosage: 150MG PER DAY
     Route: 048
     Dates: start: 20050915

REACTIONS (4)
  - BREAST PAIN [None]
  - AXILLARY PAIN [None]
  - GYNAECOMASTIA [None]
  - PERFORMANCE STATUS DECREASED [None]
